FAERS Safety Report 9140906 (Version 3)
Quarter: 2013Q2

REPORT INFORMATION
  Report Type: Report from Study
  Country: JP (occurrence: JP)
  Receive Date: 20130305
  Receipt Date: 20130411
  Transmission Date: 20140414
  Serious: Yes (Other)
  Sender: FDA-Public Use
  Company Number: JP-OTSUKA-JP-2013-10531

PATIENT
  Age: 83 Year
  Sex: Female
  Weight: 47 kg

DRUGS (8)
  1. SAMSCA [Suspect]
     Indication: FLUID RETENTION
     Dosage: 7.5 MG MILLIGRAM(S), QAM
     Route: 048
     Dates: start: 20130205, end: 20130208
  2. LASIX [Suspect]
     Indication: CARDIAC FAILURE
     Dosage: 20 MG MILLIGRAM(S), DAILY DOSE
     Route: 042
     Dates: end: 20130207
  3. LUPRAC [Suspect]
     Indication: CARDIAC FAILURE
     Dosage: 4 MG MILLIGRAM(S), DAILY DOSE
     Route: 048
  4. DIGOSIN [Concomitant]
     Indication: ATRIAL FIBRILLATION
     Dosage: 0.5 MG MILLIGRAM(S), DAILY DOSE
     Route: 042
     Dates: end: 20130201
  5. NITOROL [Concomitant]
     Indication: CARDIAC FAILURE
     Dosage: 24 MG MILLIGRAM(S), DAILY DOSE
     Route: 041
     Dates: end: 20130203
  6. HALFDIGOXIN [Concomitant]
     Indication: ATRIAL FIBRILLATION
     Dosage: 0.125 MG MILLIGRAM(S), DAILY DOSE
     Route: 048
  7. IRBETAN [Concomitant]
     Indication: CARDIAC FAILURE
     Dosage: 100 MG MILLIGRAM(S), DAILY DOSE
     Route: 048
  8. IRBETAN [Concomitant]
     Indication: HYPERTENSION

REACTIONS (3)
  - Blood urea increased [Recovered/Resolved]
  - Thirst [Recovered/Resolved]
  - Blood creatinine increased [Recovered/Resolved]
